FAERS Safety Report 8566942 (Version 5)
Quarter: 2013Q1

REPORT INFORMATION
  Report Type: Report from Study
  Country: JP (occurrence: JP)
  Receive Date: 20120514
  Receipt Date: 20130116
  Transmission Date: 20140127
  Serious: Yes (Life-Threatening, Hospitalization, Other)
  Sender: FDA-Public Use
  Company Number: JP-009507513-2012SP024677

PATIENT
  Age: 64 Year
  Sex: Male
  Weight: 69 kg

DRUGS (37)
  1. PEGINTRON [Suspect]
     Indication: CHRONIC HEPATITIS C
     Dosage: 1.5MCG/KG/WEEK
     Route: 058
     Dates: start: 20120410, end: 20120416
  2. PEGINTRON [Suspect]
     Dosage: 1.5 MICROGRAM PER KILOGRAM, QW
     Route: 058
     Dates: start: 20120705
  3. REBETOL [Suspect]
     Indication: CHRONIC HEPATITIS C
     Dosage: 800 MG, QD
     Route: 048
     Dates: start: 20120410, end: 20120412
  4. REBETOL [Suspect]
     Dosage: 600 MG, QD
     Route: 048
     Dates: start: 20120413, end: 20120416
  5. REBETOL [Suspect]
     Dosage: 800 MG, QD
     Route: 048
     Dates: start: 20120705
  6. TELAVIC [Suspect]
     Indication: CHRONIC HEPATITIS C
     Dosage: 2250 MG, QD
     Route: 048
     Dates: start: 20120410, end: 20120416
  7. ADALAT CR [Concomitant]
     Indication: HYPERTENSION
     Dosage: 60 MG, QD, POR
     Route: 048
     Dates: end: 20120412
  8. ADALAT CR [Concomitant]
     Dosage: 60 MG, QD
     Route: 048
     Dates: start: 20120417
  9. OLMETEC [Concomitant]
     Indication: HYPERTENSION
     Dosage: 40 MG, QD,POR
     Route: 048
     Dates: end: 20120412
  10. OLMETEC [Concomitant]
     Dosage: 40 MG, QD
     Route: 048
     Dates: start: 20120421
  11. CARDENALIN [Concomitant]
     Indication: HYPERTENSION
     Dosage: 1 MG, QD,POR
     Route: 048
     Dates: end: 20120412
  12. CARDENALIN [Concomitant]
     Dosage: 1 MG, QD,POR
     Route: 048
     Dates: start: 20120424
  13. FLUITRAN [Concomitant]
     Indication: HYPERTENSION
     Dosage: 1 MG, QD,POR
     Route: 048
     Dates: end: 20120412
  14. FLUITRAN [Concomitant]
     Dosage: 1 MG, QD, POR
     Route: 048
     Dates: start: 20120424
  15. NESINA [Concomitant]
     Indication: TYPE 2 DIABETES MELLITUS
     Dosage: 25 MG, QD
     Route: 048
     Dates: end: 20120412
  16. NESINA [Concomitant]
     Dosage: 25 MG, QD, POR
     Route: 048
     Dates: start: 20120424
  17. AMARYL [Concomitant]
     Indication: TYPE 2 DIABETES MELLITUS
     Dosage: 0.5 MG, QD, POR
     Route: 048
     Dates: end: 20120412
  18. AMARYL [Concomitant]
     Dosage: 0.5 MG, QD
     Route: 048
     Dates: start: 20120424
  19. METGLUCO [Concomitant]
     Indication: TYPE 2 DIABETES MELLITUS
     Dosage: 1500 MG, QD
     Route: 048
     Dates: end: 20120412
  20. METGLUCO [Concomitant]
     Dosage: 1500 MG, QD, POR
     Route: 048
     Dates: start: 20120424
  21. KINEDAK [Concomitant]
     Indication: NEUROPATHY PERIPHERAL
     Dosage: 150 MG, QD
     Route: 048
  22. LENDORMIN [Concomitant]
     Indication: INSOMNIA
     Dosage: 0.25 MG, QD,POR
     Route: 048
  23. ROHYPNOL [Concomitant]
     Indication: INSOMNIA
     Dosage: 1 MG, QD, POR
     Route: 048
     Dates: start: 20120418
  24. URSO [Concomitant]
     Indication: CHRONIC HEPATITIS C
     Dosage: 600 MG, QD
     Route: 048
     Dates: start: 20120424
  25. METHYCOBAL [Concomitant]
     Indication: NEUROPATHY PERIPHERAL
     Dosage: 15000 MG, QD, POR
     Route: 048
     Dates: start: 20120424
  26. JUVELA N [Concomitant]
     Indication: NEUROPATHY PERIPHERAL
     Dosage: 600 MG, QD
     Route: 048
     Dates: start: 20120424
  27. LOXONIN [Concomitant]
     Indication: NEURALGIA
     Dosage: 60 MG, PRN
     Route: 065
     Dates: start: 20120410, end: 20120416
  28. LOXONIN [Concomitant]
     Dosage: 60 MG, PRN
     Route: 048
     Dates: start: 20120424
  29. LOXONIN [Concomitant]
     Dosage: 120 MG, QD
     Route: 048
  30. LOXONIN [Concomitant]
     Dosage: 120 MG, ONCE
     Route: 048
  31. PRIMPERAN [Concomitant]
     Dosage: 10 MG, PRN
     Route: 042
     Dates: start: 20120412, end: 20120419
  32. ALOSITOL [Concomitant]
     Dosage: 100 MG, QD
     Route: 048
     Dates: start: 20120413, end: 20120416
  33. ELECTROLYTES (UNSPECIFIED) (+) SODIUM LACTATE [Concomitant]
     Dosage: 1000 ML, QD
     Route: 042
     Dates: start: 20120413, end: 20120421
  34. POTASSIUM CHLORIDE [Concomitant]
     Dosage: 40 ML, QD
     Route: 042
     Dates: start: 20120417, end: 20120421
  35. LYRICA [Concomitant]
     Indication: NEUROPATHY PERIPHERAL
     Dosage: 25 MG, QD
     Route: 048
     Dates: start: 20120531, end: 20120614
  36. GLYCYRON [Concomitant]
     Indication: CHRONIC HEPATITIS C
     Dosage: 6 DF, QD
     Route: 048
     Dates: start: 20120614, end: 20120704
  37. LENDORMIN D [Concomitant]
     Indication: INSOMNIA
     Dosage: 0.25 MG, ONCE
     Route: 048

REACTIONS (5)
  - General physical health deterioration [Recovering/Resolving]
  - Vomiting [Recovered/Resolved]
  - Nausea [Recovered/Resolved]
  - Dizziness [Recovered/Resolved]
  - Renal impairment [Recovered/Resolved]
